FAERS Safety Report 19814797 (Version 1)
Quarter: 2021Q3

REPORT INFORMATION
  Report Type: Spontaneous
  Country: FR (occurrence: FR)
  Receive Date: 20210910
  Receipt Date: 20210910
  Transmission Date: 20211014
  Serious: Yes (Other)
  Sender: FDA-Public Use
  Company Number: FR-PFIZER INC-202101121503

PATIENT
  Age: 49 Year
  Sex: Female

DRUGS (7)
  1. PACLITAXEL. [Suspect]
     Active Substance: PACLITAXEL
     Indication: CERVIX CARCINOMA STAGE III
     Dosage: 100MG/16.7ML FROM D1 TO 21 FOR 3 COURSES
     Route: 065
     Dates: start: 20210121
  2. PACLITAXEL. [Suspect]
     Active Substance: PACLITAXEL
     Dosage: 100MG/16.7ML, REDUCTION OF 30 PERCENT
     Route: 065
     Dates: start: 20210526
  3. CARBOPLATIN. [Suspect]
     Active Substance: CARBOPLATIN
     Indication: CERVIX CARCINOMA STAGE III
     Dosage: ONCE PER WEEK
     Route: 065
     Dates: start: 20200422
  4. CARBOPLATIN. [Suspect]
     Active Substance: CARBOPLATIN
     Dosage: ON D1, 8 AND 15 EVERY 28 DAYS CYCLE
     Route: 065
     Dates: start: 20210301
  5. PACLITAXEL. [Suspect]
     Active Substance: PACLITAXEL
     Dosage: 100MG/16.7ML ON D1, 8 AND 15 EVERY 28 DAYS CYCLE
     Route: 065
     Dates: start: 20210301
  6. CARBOPLATIN. [Suspect]
     Active Substance: CARBOPLATIN
     Dosage: D1 TO D21 FOR 3 COURSES
     Route: 065
     Dates: start: 20210121
  7. CARBOPLATIN. [Suspect]
     Active Substance: CARBOPLATIN
     Dosage: REDUCTION OF 30 PERCENT
     Route: 065
     Dates: start: 20210526

REACTIONS (3)
  - Neuropathy peripheral [Unknown]
  - Eczema [Unknown]
  - Skin lesion [Recovering/Resolving]

NARRATIVE: CASE EVENT DATE: 20210526
